FAERS Safety Report 9922879 (Version 1)
Quarter: 2014Q1

REPORT INFORMATION
  Report Type: Spontaneous
  Country: JP (occurrence: JP)
  Receive Date: 20140225
  Receipt Date: 20140225
  Transmission Date: 20141002
  Serious: Yes (Other)
  Sender: FDA-Public Use
  Company Number: JP-009507513-1402JPN011131

PATIENT
  Age: 34 Year
  Sex: Female
  Weight: 56 kg

DRUGS (3)
  1. ZETIA TABLETS 10MG [Suspect]
     Dosage: 10 MG, UNK
     Route: 048
     Dates: end: 20091024
  2. ATORVASTATIN [Concomitant]
     Dosage: 40 MG, DIVIDED DOSE FREQUENCY UNKNOWN
     Route: 048
     Dates: end: 20091024
  3. PROBUCOL [Concomitant]
     Dosage: 500 MG, DIVIDED DOSE FREQUENCY UNKNOWN
     Route: 048

REACTIONS (2)
  - Caesarean section [Unknown]
  - Maternal exposure during pregnancy [Recovered/Resolved]
